FAERS Safety Report 20734843 (Version 1)
Quarter: 2022Q2

REPORT INFORMATION
  Report Type: Spontaneous
  Country: US (occurrence: US)
  Receive Date: 20220421
  Receipt Date: 20220421
  Transmission Date: 20220720
  Serious: No
  Sender: FDA-Public Use
  Company Number: US-NOVARTISTESTPH-NVSC2022US092263

PATIENT

DRUGS (2)
  1. ESTRADIOL [Suspect]
     Active Substance: ESTRADIOL
     Indication: Product used for unknown indication
     Dosage: 0.075 MG, QD, (7 DAYS)
     Route: 065
  2. ESTRADIOL [Suspect]
     Active Substance: ESTRADIOL
     Dosage: 0.075 MG, QD, (TWICE WEEKLY)
     Route: 065

REACTIONS (7)
  - Application site irritation [Unknown]
  - Skin exfoliation [Unknown]
  - Skin injury [Unknown]
  - Erythema [Unknown]
  - Depression [Unknown]
  - Breast tenderness [Unknown]
  - Product adhesion issue [Unknown]
